FAERS Safety Report 5611935-6 (Version None)
Quarter: 2008Q1

REPORT INFORMATION
  Report Type: 
  Country: None (occurrence: None)
  Receive Date: 20080130
  Receipt Date: 20080130
  Transmission Date: 20080703
  Serious: Yes (Hospitalization)
  Sender: FDA-Public Use
  Company Number: None

PATIENT
  Age: 43 Year
  Sex: Male
  Weight: 108.5 kg

DRUGS (1)
  1. ISONIAZID [Suspect]
     Indication: TUBERCULOSIS
     Dosage: 300MG EVERY DAY PO
     Route: 048
     Dates: start: 20070502, end: 20070516

REACTIONS (6)
  - ASTHENIA [None]
  - BLOOD PRESSURE DIASTOLIC DECREASED [None]
  - DRUG ERUPTION [None]
  - GAIT DISTURBANCE [None]
  - RASH MACULAR [None]
  - RESPIRATORY RATE INCREASED [None]
